FAERS Safety Report 4342483-1 (Version None)
Quarter: 2004Q1

REPORT INFORMATION
  Report Type: 
  Country: None (occurrence: None)
  Receive Date: 20040213
  Receipt Date: 20040109
  Transmission Date: 20041129
  Serious: Yes (Other)
  Sender: FDA-Public Use
  Company Number: 355872

PATIENT
  Age: 46 Year
  Sex: Male

DRUGS (2)
  1. PEGASYS [Suspect]
     Indication: DRUG USE FOR UNKNOWN INDICATION
     Dosage: SUBCUTANEOUS
     Route: 058
  2. COPEGUS [Suspect]
     Indication: DRUG USE FOR UNKNOWN INDICATION
     Dosage: ORAL
     Route: 048

REACTIONS (9)
  - ASTHENIA [None]
  - DIZZINESS [None]
  - HEADACHE [None]
  - INSOMNIA [None]
  - MAJOR DEPRESSION [None]
  - MENTAL DISORDER [None]
  - NAUSEA [None]
  - SUICIDAL IDEATION [None]
  - SUNBURN [None]
